FAERS Safety Report 5407849-7 (Version None)
Quarter: 2007Q3

REPORT INFORMATION
  Report Type: 
  Country: None (occurrence: None)
  Receive Date: 20070803
  Receipt Date: 20070725
  Transmission Date: 20080115
  Serious: Yes (Hospitalization, Other)
  Sender: FDA-Public Use
  Company Number: TKT01200700355

PATIENT
  Age: 8 Year
  Sex: Male
  Weight: 28.1 kg

DRUGS (3)
  1. IDURSULFASE (IDURSULFASE) (0.5 MILLIGRAM (S) /KILOGRAM, CONCENTRATE FO [Suspect]
     Indication: MUCOPOLYSACCHARIDOSIS II
     Dosage: (13.5 MG,1 IN 1 WK), INTRAVENOUS DRIP
     Route: 041
     Dates: start: 20070312
  2. DIAMOX [Concomitant]
  3. XENOPEX [Concomitant]

REACTIONS (6)
  - HEADACHE [None]
  - LOCAL SWELLING [None]
  - PAIN IN JAW [None]
  - PHOTOPHOBIA [None]
  - PYREXIA [None]
  - SHUNT MALFUNCTION [None]
